FAERS Safety Report 20584194 (Version 1)
Quarter: 2022Q1

REPORT INFORMATION
  Report Type: Report from Study
  Country: EG (occurrence: EG)
  Receive Date: 20220311
  Receipt Date: 20220311
  Transmission Date: 20220423
  Serious: Yes (Other)
  Sender: FDA-Public Use
  Company Number: EG-002147023-NVSC2022EG055021

PATIENT

DRUGS (2)
  1. RUXOLITINIB [Suspect]
     Active Substance: RUXOLITINIB
     Indication: Myelofibrosis
     Dosage: 2 DOSAGE FORM, PER DAY
     Route: 048
     Dates: start: 20210918
  2. RUXOLITINIB [Suspect]
     Active Substance: RUXOLITINIB
     Dosage: 1 DOSAGE FORM, PER DAY
     Route: 048

REACTIONS (11)
  - Skin discolouration [Recovered/Resolved]
  - Swelling [Recovered/Resolved]
  - Dizziness [Recovered/Resolved]
  - Tinnitus [Recovered/Resolved]
  - Pruritus [Recovered/Resolved]
  - Inappropriate schedule of product administration [Not Recovered/Not Resolved]
  - Pain [Recovered/Resolved]
  - Rash [Recovered/Resolved]
  - Dysstasia [Recovered/Resolved]
  - Hypoacusis [Recovered/Resolved]
  - Ear disorder [Recovered/Resolved]

NARRATIVE: CASE EVENT DATE: 20210901
